FAERS Safety Report 4779702-3 (Version None)
Quarter: 2005Q3

REPORT INFORMATION
  Report Type: 
  Country: None (occurrence: None)
  Receive Date: 20050914
  Receipt Date: 20050516
  Transmission Date: 20060218
  Serious: Yes (Death, Hospitalization)
  Sender: FDA-Public Use
  Company Number: 163-20785-03030050

PATIENT
  Age: 70 Year
  Sex: Male

DRUGS (19)
  1. THALOMID [Suspect]
     Indication: MULTIPLE MYELOMA
     Dosage: 400 MG, ORAL
     Route: 048
     Dates: start: 20030131, end: 20030210
  2. THALOMID [Suspect]
     Indication: MULTIPLE MYELOMA
     Dosage: 400 MG, ORAL
     Route: 048
     Dates: start: 20030310
  3. THALOMID [Suspect]
     Indication: MULTIPLE MYELOMA
     Dosage: 400 MG, ORAL
     Route: 048
     Dates: start: 20030409
  4. THALOMID [Suspect]
     Indication: MULTIPLE MYELOMA
     Dosage: 400 MG, ORAL
     Route: 048
     Dates: start: 20030612
  5. THALOMID [Suspect]
     Indication: MULTIPLE MYELOMA
     Dosage: 400 MG, ORAL
     Route: 048
     Dates: start: 20031128
  6. THALOMID [Suspect]
     Indication: MULTIPLE MYELOMA
     Dosage: 400 MG, ORAL
     Route: 048
     Dates: start: 20040312
  7. THALOMID [Suspect]
     Indication: MULTIPLE MYELOMA
     Dosage: 400 MG, ORAL
     Route: 048
     Dates: start: 20040607
  8. VINCRISTINE [Suspect]
     Indication: MULTIPLE MYELOMA
     Dosage: 0.5 MG, INTRAVENOUS
     Route: 042
     Dates: start: 20030131, end: 20030203
  9. ADRIAMYCIN PFS [Suspect]
     Indication: MULTIPLE MYELOMA
     Dosage: 19 MG, INTRAVENOUS; SEE IMAGE
     Route: 042
     Dates: start: 20030131, end: 20030203
  10. ADRIAMYCIN PFS [Suspect]
     Indication: MULTIPLE MYELOMA
     Dosage: 19 MG, INTRAVENOUS; SEE IMAGE
     Route: 042
     Dates: start: 20030409, end: 20030412
  11. DEXAMETHASONE [Suspect]
     Indication: MULTIPLE MYELOMA
     Dosage: 40 MG, ORAL; SEE IMAGE
     Route: 048
     Dates: start: 20030131, end: 20030203
  12. DEXAMETHASONE [Suspect]
     Indication: MULTIPLE MYELOMA
     Dosage: 40 MG, ORAL; SEE IMAGE
     Route: 048
     Dates: start: 20030208, end: 20030211
  13. DEXAMETHASONE [Suspect]
     Indication: MULTIPLE MYELOMA
     Dosage: 40 MG, ORAL; SEE IMAGE
     Route: 048
     Dates: start: 20030409, end: 20030412
  14. CYTOXAN [Suspect]
     Indication: MULTIPLE MYELOMA
     Dosage: 1440 MG, DAILY, INTRAVENOUS
     Route: 042
     Dates: start: 20030409, end: 20030412
  15. BACTRIM [Concomitant]
  16. TEQUIN (GATIFLOXACIN) (UNKNOWN) [Concomitant]
  17. ACYCLOVIR (ACICLOVIR) (UNKNOWN) [Concomitant]
  18. FLUCONAZOLE (FLUCONAZOLE) (UNKNOWN) [Concomitant]
  19. LOVENOX (HEPARIN-FRACTION, SODIUM SALT) (UNKNOWN) [Concomitant]

REACTIONS (4)
  - ABDOMINAL PAIN [None]
  - ASTHENIA [None]
  - DEATH [None]
  - DYSPNOEA [None]
